FAERS Safety Report 6049316-6 (Version None)
Quarter: 2009Q1

REPORT INFORMATION
  Report Type: 
  Country: None (occurrence: None)
  Receive Date: 20090123
  Receipt Date: 20090115
  Transmission Date: 20090719
  Serious: Yes (Hospitalization)
  Sender: FDA-Public Use
  Company Number: GB-ROXANE LABORATORIES, INC.-2009-RO-00068RO

PATIENT
  Age: 38 Year
  Sex: Male

DRUGS (2)
  1. BALSALAZIDE DISODIUM [Suspect]
     Indication: COLITIS ULCERATIVE
     Dosage: 6.75MG
  2. PREDNISOLONE [Suspect]
     Indication: COLITIS ULCERATIVE

REACTIONS (1)
  - MYOCARDITIS [None]
